FAERS Safety Report 5665156-1 (Version None)
Quarter: 2008Q1

REPORT INFORMATION
  Report Type: 
  Country: None (occurrence: None)
  Receive Date: 20080314
  Receipt Date: 20080312
  Transmission Date: 20080703
  Serious: Yes (Other)
  Sender: FDA-Public Use
  Company Number: US-PFIZER INC-2008022901

PATIENT
  Sex: Female
  Weight: 69.545 kg

DRUGS (9)
  1. REVATIO [Suspect]
     Indication: PULMONARY HYPERTENSION
  2. TRACLEER [Concomitant]
  3. COUMADIN [Concomitant]
  4. LEVOXYL [Concomitant]
  5. LITHIUM CARBONATE [Concomitant]
  6. CLONAZEPAM [Concomitant]
  7. AMITRIPTYLINE HCL [Concomitant]
  8. ALPRAZOLAM [Concomitant]
  9. WELLBUTRIN [Concomitant]

REACTIONS (3)
  - ANXIETY [None]
  - BLOOD PRESSURE DECREASED [None]
  - DEPRESSED MOOD [None]
